FAERS Safety Report 17518826 (Version 4)
Quarter: 2020Q2

REPORT INFORMATION
  Report Type: Spontaneous
  Country: AR (occurrence: AR)
  Receive Date: 20200309
  Receipt Date: 20200408
  Transmission Date: 20200713
  Serious: Yes (Hospitalization, Other)
  Sender: FDA-Public Use
  Company Number: NVSC2020AR065886

PATIENT
  Age: 64 Year
  Sex: Female
  Weight: 89 kg

DRUGS (5)
  1. GLUCEMIX MET [Suspect]
     Active Substance: METFORMIN HYDROCHLORIDE\VILDAGLIPTIN
     Indication: TYPE 2 DIABETES MELLITUS
     Dosage: UNK, Q12H, 50/1000 MG
     Route: 048
     Dates: start: 202001
  2. VALSARTAN. [Suspect]
     Active Substance: VALSARTAN
     Indication: HYPERTENSION
     Dosage: 80 MG, QD
     Route: 065
     Dates: start: 2000
  3. METFORMIN [Suspect]
     Active Substance: METFORMIN HYDROCHLORIDE
     Indication: DIABETES MELLITUS
     Route: 065
  4. GALVUS MET [Suspect]
     Active Substance: METFORMIN HYDROCHLORIDE\VILDAGLIPTIN
     Indication: DIABETES MELLITUS
     Dosage: UNK, Q12H, 50/ 1000 MG
     Route: 065
     Dates: start: 2003, end: 202001
  5. INSULIN [Concomitant]
     Active Substance: INSULIN NOS
     Indication: PRODUCT USED FOR UNKNOWN INDICATION
     Route: 065

REACTIONS (8)
  - Vulvovaginal rash [Not Recovered/Not Resolved]
  - Urinary tract infection [Recovered/Resolved]
  - Hypercholesterolaemia [Unknown]
  - Carotid artery occlusion [Unknown]
  - Breast cancer [Unknown]
  - Rash [Recovered/Resolved]
  - Escherichia infection [Recovered/Resolved]
  - Fungal infection [Recovered/Resolved]

NARRATIVE: CASE EVENT DATE: 2008
